FAERS Safety Report 9848837 (Version 1)
Quarter: 2014Q1

REPORT INFORMATION
  Report Type: Spontaneous
  Country: US (occurrence: None)
  Receive Date: 20140127
  Receipt Date: 20140127
  Transmission Date: 20141002
  Serious: Yes (Hospitalization)
  Sender: FDA-Public Use
  Company Number: None

PATIENT
  Age: 52 Year
  Sex: Male
  Weight: 62.6 kg

DRUGS (5)
  1. XERALTO [Suspect]
     Route: 048
  2. DILTIAZEM [Concomitant]
  3. HYDROCHLOROTHIAZIDE [Concomitant]
  4. LISINOPRIL [Concomitant]
  5. LEVEMIR [Concomitant]

REACTIONS (2)
  - Upper gastrointestinal haemorrhage [None]
  - Anaemia [None]
